FAERS Safety Report 17912806 (Version 1)
Quarter: 2020Q2

REPORT INFORMATION
  Report Type: Spontaneous
  Country: US (occurrence: US)
  Receive Date: 20200618
  Receipt Date: 20200618
  Transmission Date: 20200714
  Serious: No
  Sender: FDA-Public Use
  Company Number: US-TEVA-2020-US-1537533

PATIENT
  Age: 82 Year
  Sex: Female

DRUGS (1)
  1. PROAIR HFA [Suspect]
     Active Substance: ALBUTEROL SULFATE
     Indication: CHRONIC OBSTRUCTIVE PULMONARY DISEASE
     Dosage: PRESCRIBED 2 PUFFS EVERY 4 HOURS OR AS NEEDED FOR SHORTNESS OF BREATH
     Route: 065
     Dates: start: 20200411

REACTIONS (1)
  - Visual impairment [Unknown]
